FAERS Safety Report 17057124 (Version 2)
Quarter: 2020Q1

REPORT INFORMATION
  Report Type: Spontaneous
  Country: US (occurrence: US)
  Receive Date: 20191121
  Receipt Date: 20200106
  Transmission Date: 20200409
  Serious: Yes (Life-Threatening, Hospitalization, Other)
  Sender: FDA-Public Use
  Company Number: US-ACCORD-161917

PATIENT
  Age: 45 Year
  Sex: Male

DRUGS (1)
  1. AMITRIPTYLINE [Suspect]
     Active Substance: AMITRIPTYLINE

REACTIONS (13)
  - Toxicity to various agents [Unknown]
  - Electrocardiogram QRS complex prolonged [Recovered/Resolved]
  - Electrocardiogram abnormal [Recovered/Resolved]
  - Electrocardiogram P wave abnormal [Recovered/Resolved]
  - Electrocardiogram ST segment elevation [Recovered/Resolved]
  - Electrocardiogram T wave inversion [Recovered/Resolved]
  - QRS axis abnormal [Recovered/Resolved]
  - Electrocardiogram QT prolonged [Recovered/Resolved]
  - Tachycardia [Recovered/Resolved]
  - Generalised tonic-clonic seizure [Recovered/Resolved]
  - Disorientation [Recovered/Resolved]
  - Overdose [Unknown]
  - Somnolence [Recovered/Resolved]
